FAERS Safety Report 8051276-3 (Version None)
Quarter: 2012Q1

REPORT INFORMATION
  Report Type: 
  Country: None (occurrence: None)
  Receive Date: 20120117
  Receipt Date: 20120104
  Transmission Date: 20120608
  Serious: Yes (Death)
  Sender: FDA-Public Use
  Company Number: US-MUTUAL PHARMACEUTICAL COMPANY, INC.-QNSF20120002

PATIENT
  Age: 38 Year
  Sex: Female

DRUGS (10)
  1. PROMETHAZINE [Concomitant]
     Indication: PRODUCT USED FOR UNKNOWN INDICATION
     Route: 065
     Dates: end: 20100101
  2. AMPHETAMINES [Concomitant]
     Indication: PRODUCT USED FOR UNKNOWN INDICATION
     Route: 065
     Dates: end: 20100101
  3. UNKNOWN MEDICATIONS [Concomitant]
     Indication: PRODUCT USED FOR UNKNOWN INDICATION
     Route: 065
     Dates: end: 20100101
  4. QUETIAPINE [Suspect]
     Indication: PRODUCT USED FOR UNKNOWN INDICATION
     Route: 048
     Dates: end: 20100101
  5. CARPROFEN [Suspect]
     Indication: PRODUCT USED FOR UNKNOWN INDICATION
     Route: 048
     Dates: end: 20100101
  6. BENZODIAZEPINES [Concomitant]
     Indication: PRODUCT USED FOR UNKNOWN INDICATION
     Route: 065
     Dates: end: 20100101
  7. QUININE SULFATE [Suspect]
     Indication: PRODUCT USED FOR UNKNOWN INDICATION
     Route: 048
     Dates: end: 20100101
  8. ACETAMINOPHEN/DIPHENHYDRAMINE [Suspect]
     Indication: PRODUCT USED FOR UNKNOWN INDICATION
     Route: 048
     Dates: end: 20100101
  9. HYDROMORPHONE HCL [Concomitant]
     Indication: PRODUCT USED FOR UNKNOWN INDICATION
     Route: 065
     Dates: end: 20100101
  10. ESCITALOPRAM [Concomitant]
     Indication: PRODUCT USED FOR UNKNOWN INDICATION
     Route: 065
     Dates: end: 20100101

REACTIONS (20)
  - UNRESPONSIVE TO STIMULI [None]
  - BLOOD PH DECREASED [None]
  - HYPOTENSION [None]
  - CONVULSION [None]
  - PUPIL FIXED [None]
  - VISCERAL CONGESTION [None]
  - CARDIAC HYPERTROPHY [None]
  - PULMONARY CONGESTION [None]
  - ELECTROCARDIOGRAM QT PROLONGED [None]
  - VENTRICULAR FIBRILLATION [None]
  - COMPLETED SUICIDE [None]
  - VENTRICULAR TACHYCARDIA [None]
  - PULSE ABSENT [None]
  - AORTIC VALVE STENOSIS [None]
  - BUNDLE BRANCH BLOCK LEFT [None]
  - WHITE BLOOD CELL COUNT INCREASED [None]
  - ELECTROCARDIOGRAM QRS COMPLEX PROLONGED [None]
  - HAEMATOCRIT DECREASED [None]
  - PCO2 INCREASED [None]
  - SINUS TACHYCARDIA [None]
